FAERS Safety Report 9833908 (Version 1)
Quarter: 2014Q1

REPORT INFORMATION
  Report Type: Spontaneous
  Country: US (occurrence: US)
  Receive Date: 20140122
  Receipt Date: 20140122
  Transmission Date: 20141002
  Serious: No
  Sender: FDA-Public Use
  Company Number: US-BIOGENIDEC-2014BI005622

PATIENT
  Age: 27 Year
  Sex: Female
  Weight: 104 kg

DRUGS (3)
  1. TECFIDERA [Suspect]
     Indication: MULTIPLE SCLEROSIS
     Route: 048
     Dates: start: 20140103
  2. TECFIDERA [Suspect]
     Indication: MULTIPLE SCLEROSIS
     Route: 048
     Dates: start: 20140107
  3. Z-PACK [Concomitant]

REACTIONS (6)
  - Menometrorrhagia [Unknown]
  - Oligomenorrhoea [Unknown]
  - Menorrhagia [Unknown]
  - Nasopharyngitis [Unknown]
  - Stress [Unknown]
  - Insomnia [Unknown]
